FAERS Safety Report 14347949 (Version 2)
Quarter: 2024Q3

REPORT INFORMATION
  Report Type: Spontaneous
  Country: LT (occurrence: LT)
  Receive Date: 20180103
  Receipt Date: 20240812
  Transmission Date: 20241016
  Serious: Yes (Life-Threatening, Hospitalization, Other)
  Sender: MYLAN
  Company Number: LT-MYLANLABS-2017M1081956

PATIENT
  Age: 53 Year
  Sex: Female

DRUGS (15)
  1. FENTANYL [Interacting]
     Active Substance: FENTANYL\FENTANYL CITRATE
     Indication: Pain management
     Dosage: 75MICROG/H; LONG-TERM USE
     Route: 062
  2. CISPLATIN [Suspect]
     Active Substance: CISPLATIN
     Indication: Pleural mesothelioma
     Dosage: INITIAL DOSE WAS UNKNOWN; HOWEVER, AT THE TIME OF SECOND CYCLE, SHE RECEIVED 150 MG
     Route: 042
     Dates: start: 2015, end: 2016
  3. ONDANSETRON [Interacting]
     Active Substance: ONDANSETRON
     Indication: Prophylaxis of nausea and vomiting
     Dosage: 8 MILLIGRAM, QD
     Route: 048
     Dates: start: 2016
  4. TRAMADOL [Interacting]
     Active Substance: TRAMADOL\TRAMADOL HYDROCHLORIDE
     Indication: Pain management
     Dosage: 100MG; LONG-TERM USE
     Route: 048
  5. ALPRAZOLAM [Interacting]
     Active Substance: ALPRAZOLAM
     Indication: Anxiety disorder
     Dosage: 0.5 MILLIGRAM, QD
     Route: 048
  6. APREPITANT [Interacting]
     Active Substance: APREPITANT
     Indication: Prophylaxis of nausea and vomiting
     Dosage: 125 MILLIGRAM, QD
     Route: 048
     Dates: start: 2016
  7. FOLIC ACID [Concomitant]
     Active Substance: FOLIC ACID
     Indication: Product used for unknown indication
     Dosage: 1000 MICROGRAM, QD
     Route: 042
     Dates: start: 2016
  8. CYANOCOBALAMIN [Concomitant]
     Active Substance: CYANOCOBALAMIN
     Indication: Product used for unknown indication
     Dosage: 1000 MICROGRAM, QD
     Route: 042
     Dates: start: 2016
  9. MANNITOL [Concomitant]
     Active Substance: MANNITOL
     Indication: Prophylaxis
     Dosage: 1000 MILLILITER (10 PROC.)
     Route: 042
     Dates: start: 2016
  10. DEXAMETHASONE [Concomitant]
     Active Substance: DEXAMETHASONE
     Indication: Premedication
     Dosage: 4 MILLIGRAM, QD
     Route: 048
     Dates: start: 2016
  11. METOPROLOL SUCCINATE [Concomitant]
     Active Substance: METOPROLOL SUCCINATE
     Indication: Hypertension
     Dosage: 47.5 MILLIGRAM, QD
     Route: 048
  12. TIANEPTINE [Concomitant]
     Active Substance: TIANEPTINE
     Indication: Depression
     Dosage: 12.5 MILLIGRAM, QD
     Route: 048
  13. TIANEPTINE [Concomitant]
     Active Substance: TIANEPTINE
     Indication: Pain management
  14. PEMETREXED [Concomitant]
     Active Substance: PEMETREXED
     Indication: Pleural mesothelioma
     Dosage: UNK
     Route: 065
     Dates: start: 2015, end: 2016
  15. SHARK CARTILAGE\SHARK, UNSPECIFIED [Concomitant]
     Active Substance: SHARK CARTILAGE\SHARK, UNSPECIFIED
     Indication: Product used for unknown indication
     Dosage: 7.5 MILLILITER
     Route: 048

REACTIONS (3)
  - Cardio-respiratory arrest [Recovered/Resolved]
  - Circulatory collapse [Recovered/Resolved]
  - Drug interaction [Recovered/Resolved]

NARRATIVE: CASE EVENT DATE: 20160101
